FAERS Safety Report 6576765-X (Version None)
Quarter: 2010Q1

REPORT INFORMATION
  Report Type: 
  Country: None (occurrence: None)
  Receive Date: 20100210
  Receipt Date: 20100129
  Transmission Date: 20100710
  Serious: No
  Sender: FDA-Public Use
  Company Number: US-ELI_LILLY_AND_COMPANY-US200912003328

PATIENT
  Sex: Female
  Weight: 47.029 kg

DRUGS (12)
  1. ZYPREXA [Suspect]
     Indication: SCHIZOPHRENIA, PARANOID TYPE
     Dosage: 20 MG, 2/D
     Dates: start: 20090501
  2. ZYPREXA [Suspect]
     Dosage: 60 MG, DAILY (1/D)
     Dates: start: 20090601
  3. ZYPREXA [Suspect]
     Dosage: 40 MG, EACH EVENING
     Dates: start: 20090601
  4. ZYPREXA [Suspect]
     Indication: SCHIZOPHRENIA, PARANOID TYPE
     Dosage: 10 MG, 2/D
     Dates: start: 20090501
  5. CLOZAPINE [Concomitant]
     Dates: end: 20090501
  6. CARBAMIDE PEROXIDE [Concomitant]
     Dosage: UNK, 2/D
     Route: 001
  7. FLUPHENAZINE DECANOATE [Concomitant]
     Dosage: 12.5 D/F, UNK
     Route: 030
  8. DOCUSATE [Concomitant]
     Dosage: UNK, 2/D
     Route: 048
  9. PSYLLIUM HYDROPHILIC MUCILLOID [Concomitant]
     Dosage: UNK, 2/D
     Route: 048
  10. VITAMIN B COMPLEX CAP [Concomitant]
     Dosage: UNK, DAILY (1/D)
     Route: 048
  11. OMEPRAZOLE [Concomitant]
     Dosage: UNK, DAILY (1/D)
     Route: 048
  12. METOPROLOL SUCCINATE [Concomitant]
     Dosage: 25 MG, DAILY (1/D)
     Route: 048

REACTIONS (3)
  - LEUKOPENIA [None]
  - NEUTROPENIA [None]
  - OVERDOSE [None]
